FAERS Safety Report 6741394-1 (Version None)
Quarter: 2010Q2

REPORT INFORMATION
  Report Type: 
  Country: None (occurrence: None)
  Receive Date: 20100526
  Receipt Date: 20100518
  Transmission Date: 20101027
  Serious: Yes (Disabling)
  Sender: FDA-Public Use
  Company Number: NL-MPIJNJ-2007_01127

PATIENT

DRUGS (11)
  1. VELCADE [Suspect]
     Indication: MULTIPLE MYELOMA
     Dosage: 2.70 MG, UNK
     Route: 065
     Dates: start: 20070326, end: 20070405
  2. ADRIAMYCIN PFS [Suspect]
     Indication: MULTIPLE MYELOMA
     Route: 065
  3. DEXAMETHASONE [Suspect]
     Indication: MULTIPLE MYELOMA
     Route: 065
  4. COTRIM [Concomitant]
     Dosage: 960 MG, UNK
  5. FLUCONAZOLE [Concomitant]
     Dosage: 200.00 MG, UNK
  6. ATENOLOL [Concomitant]
     Dosage: 50.00 MG, UNK
  7. FUROSEMIDE [Concomitant]
     Dosage: 4.00 MG, UNK
  8. FENTANYL [Concomitant]
     Dosage: 25.00 UG, UNK
  9. METOCLOPRAMIDE [Concomitant]
     Dosage: 10.00 MG, UNK
  10. VALACYCLOVIR [Concomitant]
     Dosage: 500.00 MG, UNK
  11. MOVICOLON [Concomitant]

REACTIONS (7)
  - BACK PAIN [None]
  - DYSPNOEA [None]
  - PARALYSIS [None]
  - PNEUMONIA ASPIRATION [None]
  - SPINAL CORD COMPRESSION [None]
  - SUBDURAL HAEMATOMA [None]
  - URINARY INCONTINENCE [None]
